APPROVED DRUG PRODUCT: SUMYCIN
Active Ingredient: TETRACYCLINE HYDROCHLORIDE
Strength: 125MG
Dosage Form/Route: CAPSULE;ORAL
Application: A060429 | Product #004
Applicant: APOTHECON INC DIV BRISTOL MYERS SQUIBB
Approved: Approved Prior to Jan 1, 1982 | RLD: No | RS: No | Type: DISCN